FAERS Safety Report 4528645-9 (Version None)
Quarter: 2004Q4

REPORT INFORMATION
  Report Type: 
  Country: None (occurrence: None)
  Receive Date: 20041216
  Receipt Date: 20041209
  Transmission Date: 20050328
  Serious: Yes (Other)
  Sender: FDA-Public Use
  Company Number: US-GLAXOSMITHKLINE-A0536715A

PATIENT
  Age: 75 Year
  Sex: Female

DRUGS (3)
  1. TUMS [Suspect]
     Indication: DYSPEPSIA
     Route: 048
     Dates: start: 19840101, end: 19940101
  2. TUMS ULTRA TABLETS, ASSORTED FRUIT [Suspect]
     Indication: DYSPEPSIA
     Dosage: 8TAB PER DAY
     Route: 048
     Dates: start: 19940101, end: 20041101
  3. ATENOLOL [Concomitant]
     Route: 048

REACTIONS (2)
  - DYSPNOEA EXERTIONAL [None]
  - PULMONARY FIBROSIS [None]
